FAERS Safety Report 9384254 (Version 1)
Quarter: 2013Q3

REPORT INFORMATION
  Report Type: Spontaneous
  Country: US (occurrence: None)
  Receive Date: 20130702
  Receipt Date: 20130702
  Transmission Date: 20140515
  Serious: No
  Sender: FDA-Public Use
  Company Number: None

PATIENT
  Sex: Female

DRUGS (4)
  1. HUMIRA [Suspect]
     Indication: CROHN^S DISEASE
     Dosage: 40 MG EVERY OTHER WEEK SQ
     Route: 058
     Dates: start: 20120724, end: 20130628
  2. ASOCOL [Concomitant]
  3. XANAX [Concomitant]
  4. ALINIA [Concomitant]

REACTIONS (2)
  - Burning sensation [None]
  - Vein disorder [None]
